FAERS Safety Report 6291438-9 (Version None)
Quarter: 2009Q3

REPORT INFORMATION
  Report Type: 
  Country: None (occurrence: None)
  Receive Date: 20090730
  Receipt Date: 20090723
  Transmission Date: 20100115
  Serious: Yes (Other)
  Sender: FDA-Public Use
  Company Number: US-CELGENEUS-163-21880-09071721

PATIENT
  Sex: Female

DRUGS (3)
  1. REVLIMID [Suspect]
     Indication: MULTIPLE MYELOMA
     Route: 048
     Dates: start: 20070201
  2. REVLIMID [Suspect]
     Route: 048
     Dates: start: 20060901, end: 20061101
  3. REVLIMID [Suspect]
     Route: 048
     Dates: start: 20061201, end: 20070201

REACTIONS (1)
  - HERNIA [None]
